FAERS Safety Report 6581568-6 (Version None)
Quarter: 2010Q1

REPORT INFORMATION
  Report Type: 
  Country: None (occurrence: None)
  Receive Date: 20100215
  Receipt Date: 20100210
  Transmission Date: 20100710
  Serious: Yes (Death)
  Sender: FDA-Public Use
  Company Number: ES-JNJFOC-20100205454

PATIENT

DRUGS (1)
  1. DORIPENEM [Suspect]
     Indication: MULTI-ORGAN FAILURE
     Route: 041

REACTIONS (2)
  - MULTI-ORGAN FAILURE [None]
  - OFF LABEL USE [None]
